FAERS Safety Report 15494472 (Version 2)
Quarter: 2018Q4

REPORT INFORMATION
  Report Type: Spontaneous
  Country: US (occurrence: US)
  Receive Date: 20181012
  Receipt Date: 20181024
  Transmission Date: 20190205
  Serious: No
  Sender: FDA-Public Use
  Company Number: US-BIOMARINAP-US-2018-120139

PATIENT
  Age: 18 Year
  Sex: Male
  Weight: 68.48 kg

DRUGS (3)
  1. PALYNZIQ [Suspect]
     Active Substance: PEGVALIASE-PQPZ
     Indication: PHENYLKETONURIA
     Dosage: 2.5 MILLIGRAM, QW
     Route: 058
     Dates: start: 20180920
  2. ZANTAC [Concomitant]
     Active Substance: RANITIDINE HYDROCHLORIDE
     Indication: PREMEDICATION
     Dosage: 300 MILLIGRAM, QD
  3. CLARITIN [Concomitant]
     Active Substance: LORATADINE
     Indication: PREMEDICATION

REACTIONS (13)
  - Pyrexia [Recovered/Resolved]
  - Injection site pain [Unknown]
  - Abdominal pain upper [Unknown]
  - Injection site erythema [Recovered/Resolved]
  - Injection site swelling [Unknown]
  - Injection site bruising [Recovered/Resolved]
  - Headache [Unknown]
  - Vomiting [Recovered/Resolved]
  - Injection site reaction [Recovered/Resolved]
  - Injection site induration [Recovered/Resolved]
  - Arthralgia [Unknown]
  - Decreased appetite [Unknown]
  - Weight decreased [Unknown]

NARRATIVE: CASE EVENT DATE: 20180928
